FAERS Safety Report 11176809 (Version 1)
Quarter: 2015Q2

REPORT INFORMATION
  Report Type: Spontaneous
  Country: US (occurrence: None)
  Receive Date: 20150512
  Receipt Date: 20150512
  Transmission Date: 20150821
  Serious: No
  Sender: FDA-Public Use
  Company Number: US-002968K

PATIENT
  Sex: Male

DRUGS (6)
  1. FLUCYTOSINE. [Suspect]
     Active Substance: FLUCYTOSINE
     Indication: ENCEPHALITIS
  2. AZITHROMYCIN [Suspect]
     Active Substance: AZITHROMYCIN ANHYDROUS
     Indication: ENCEPHALITIS
  3. MILTEFOSINE (MILTEFOSINE) CAPSULE, 50MG [Suspect]
     Active Substance: MILTEFOSINE
     Indication: ENCEPHALITIS
  4. SULFADIAZINE. [Suspect]
     Active Substance: SULFADIAZINE
     Indication: ENCEPHALITIS
  5. PENTAMIDINE [Suspect]
     Active Substance: PENTAMIDINE
     Indication: ENCEPHALITIS
  6. FLUCONAZOLE (FLUCONAZOLE) [Suspect]
     Active Substance: FLUCONAZOLE
     Indication: ENCEPHALITIS

REACTIONS (2)
  - Therapeutic response unexpected [None]
  - Off label use [None]
